FAERS Safety Report 26151854 (Version 1)
Quarter: 2025Q4

REPORT INFORMATION
  Report Type: Spontaneous
  Country: US (occurrence: US)
  Receive Date: 20251214
  Receipt Date: 20251214
  Transmission Date: 20260118
  Serious: No
  Sender: RECORDATI
  Company Number: US-RECORDATI RARE DISEASE INC.-2023007490

PATIENT
  Age: 59 Year
  Sex: Male
  Weight: 113 kg

DRUGS (20)
  1. SIGNIFOR [Suspect]
     Active Substance: PASIREOTIDE DIASPARTATE
     Indication: Goitre
     Dosage: 0.3 MG, BID
     Route: 058
     Dates: start: 20231020, end: 20240324
  2. SIGNIFOR [Suspect]
     Active Substance: PASIREOTIDE DIASPARTATE
     Indication: Endocrine pancreatic disorder
     Dosage: 0.6 MG, BID
     Route: 058
     Dates: start: 20240325
  3. SIGNIFOR [Suspect]
     Active Substance: PASIREOTIDE DIASPARTATE
     Indication: Bone disorder
     Dosage: 0.9 MG/ML (0.9 MG/ML AMPOULE 60/BOX)
     Route: 058
  4. SIGNIFOR [Suspect]
     Active Substance: PASIREOTIDE DIASPARTATE
     Indication: Off label use
  5. GLUCAGON [Concomitant]
     Active Substance: GLUCAGON
     Indication: Product used for unknown indication
     Dosage: SHOTS
  6. ACARBOSE [Concomitant]
     Active Substance: ACARBOSE
     Indication: Product used for unknown indication
     Dosage: 100 MILLIGRAM, TID (100 MG TABLET)
     Route: 048
     Dates: start: 20210202
  7. ATORVASTATIN CALCIUM [Concomitant]
     Active Substance: ATORVASTATIN CALCIUM
     Indication: Product used for unknown indication
     Dosage: 10 MILLIGRAM, QD (QPM) (10 TABLET)
     Route: 048
     Dates: start: 20230202
  8. CALCITRIOL [Concomitant]
     Active Substance: CALCITRIOL
     Indication: Product used for unknown indication
     Dosage: 0.25 MICROGRAM, QD (QPM) (0.25 MCG TABLET)
     Route: 048
     Dates: start: 20210909
  9. ELIQUIS [Concomitant]
     Active Substance: APIXABAN
     Indication: Product used for unknown indication
     Dosage: 5 MILLIGRAM, BID (5 MG TABLET)
     Route: 048
     Dates: start: 20220808
  10. FINASTERIDE [Concomitant]
     Active Substance: FINASTERIDE
     Indication: Product used for unknown indication
     Dosage: 5 MILLIGRAM, QD (QPM) (5 MG TABLET)
     Route: 048
     Dates: start: 20210707
  11. GAVISCON EXTRA STRENGTH [Concomitant]
     Active Substance: ALUMINUM HYDROXIDE\MAGNESIUM CARBONATE
     Indication: Product used for unknown indication
     Dosage: 160-105 MILLIGRAM, QD (QPM) (TABLET)
     Route: 048
     Dates: start: 20040606
  12. LOSARTAN POTASSIUM [Concomitant]
     Active Substance: LOSARTAN POTASSIUM
     Indication: Product used for unknown indication
     Dosage: 100 MILLIGRAM, QD (QPM) (100 TABLET)
     Route: 048
     Dates: start: 20130404
  13. MAGNESIUM [Concomitant]
     Active Substance: MAGNESIUM
     Indication: Product used for unknown indication
     Dosage: 250 MILLIGRAM, QD (QPM) (250 MG TABLET)
     Route: 048
     Dates: start: 20190505
  14. SPIRONOLACTONE [Concomitant]
     Active Substance: SPIRONOLACTONE
     Indication: Product used for unknown indication
     Dosage: 25 MILLIGRAM, QD (QPM) (25 MG TABLET)
     Route: 048
     Dates: start: 20130101
  15. STOOL SOFTENER (DOCUSATE) [Concomitant]
     Active Substance: DOCUSATE
     Indication: Product used for unknown indication
     Dosage: 50 MILLIGRAM, BID (100 MG CAPSULE)
     Route: 048
     Dates: start: 20211001
  16. TAMSULOSIN HYDROCHLORIDE [Concomitant]
     Active Substance: TAMSULOSIN HYDROCHLORIDE
     Indication: Product used for unknown indication
     Dosage: 0.4 MILLIGRAM, BID (0.4 MG CAPSULE)
     Route: 048
     Dates: start: 20200101
  17. TROSPIUM CHLORIDE [Concomitant]
     Active Substance: TROSPIUM CHLORIDE
     Indication: Product used for unknown indication
     Dosage: 20 MILLIGRAM, QD (QPM) (20 MG TABLET)
     Route: 048
     Dates: start: 20201231
  18. VERAPAMIL HCL [Concomitant]
     Active Substance: VERAPAMIL HYDROCHLORIDE
     Indication: Product used for unknown indication
     Dosage: 180 MILLIGRAM, QD (QAM) (EXTENDED RELEASE TABLET)
     Route: 048
     Dates: start: 20230608
  19. VITAMIN B12 [Concomitant]
     Active Substance: CYANOCOBALAMIN
     Indication: Product used for unknown indication
     Dosage: 250 MICROGRAM, QD (250 MCG TABLET)
     Route: 048
     Dates: start: 20200303
  20. ZINC [Concomitant]
     Active Substance: ZINC
     Indication: Product used for unknown indication
     Dosage: 30 MILLIGRAM, BID (30 MG TABLET)
     Route: 048
     Dates: start: 20230528

REACTIONS (3)
  - Blood glucose decreased [Recovered/Resolved]
  - Blood glucose decreased [Recovered/Resolved]
  - Off label use [Recovered/Resolved]

NARRATIVE: CASE EVENT DATE: 20231020
